FAERS Safety Report 23544535 (Version 2)
Quarter: 2024Q1

REPORT INFORMATION
  Report Type: Spontaneous
  Country: DE (occurrence: DE)
  Receive Date: 20240220
  Receipt Date: 20240304
  Transmission Date: 20240410
  Serious: Yes (Hospitalization, Congenital Anomaly, Other)
  Sender: FDA-Public Use
  Company Number: DE-PBPHARMA-231117-01

PATIENT
  Sex: Female

DRUGS (3)
  1. AZATHIOPRINE [Suspect]
     Active Substance: AZATHIOPRINE
     Indication: Immunosuppressant drug therapy
     Dosage: UNK
     Route: 064
  2. PREDNISOLONE [Concomitant]
     Active Substance: PREDNISOLONE
     Indication: Immunosuppressant drug therapy
     Dosage: UNK
     Route: 064
  3. TACROLIMUS [Concomitant]
     Active Substance: TACROLIMUS
     Indication: Immunosuppressant drug therapy
     Dosage: UNK
     Route: 064

REACTIONS (6)
  - Combined immunodeficiency [Recovering/Resolving]
  - Blood immunoglobulin M decreased [Recovering/Resolving]
  - Blood immunoglobulin A decreased [Recovering/Resolving]
  - Lymphopenia [Unknown]
  - Maternal exposure during pregnancy [Unknown]
  - Foetal exposure during pregnancy [Unknown]
